FAERS Safety Report 21353542 (Version 1)
Quarter: 2022Q3

REPORT INFORMATION
  Report Type: Spontaneous
  Country: DE (occurrence: None)
  Receive Date: 20220920
  Receipt Date: 20220920
  Transmission Date: 20221026
  Serious: Yes (Other)
  Sender: FDA-Public Use
  Company Number: DE-ROCHE-3180599

PATIENT
  Age: 64 Year
  Sex: Female

DRUGS (11)
  1. RITUXIMAB [Suspect]
     Active Substance: RITUXIMAB
     Indication: Follicular lymphoma
     Dosage: FIRST LINE WITH POLATUZUMAB AND BENDAMUSTINE
     Route: 065
     Dates: start: 20180101, end: 20180601
  2. RITUXIMAB [Suspect]
     Active Substance: RITUXIMAB
     Indication: Diffuse large B-cell lymphoma
     Dosage: SECOND LINE WITH 90 YTTRIUM IBRITUMOMAB- TIUXETAN
     Route: 065
     Dates: start: 20191001, end: 20191001
  3. RITUXIMAB [Suspect]
     Active Substance: RITUXIMAB
     Dosage: THIRD LINE WITCH CHOP
     Route: 065
     Dates: start: 20211001, end: 20211101
  4. RITUXIMAB [Suspect]
     Active Substance: RITUXIMAB
     Dosage: FOURTH LINE WITH ICE
     Route: 065
     Dates: start: 20211201, end: 20220201
  5. RITUXIMAB [Suspect]
     Active Substance: RITUXIMAB
     Dosage: FIFTH LINE WITH POLATUZUMAB AND BENDAMUSTINE
     Route: 065
     Dates: start: 20220401, end: 20220401
  6. POLATUZUMAB VEDOTIN [Suspect]
     Active Substance: POLATUZUMAB VEDOTIN
     Indication: Follicular lymphoma
     Dosage: FIRST LINE WITH BENDAMUSTINE AND RITUXIMAB
     Route: 065
     Dates: start: 20180101, end: 20180601
  7. POLATUZUMAB VEDOTIN [Suspect]
     Active Substance: POLATUZUMAB VEDOTIN
     Indication: Diffuse large B-cell lymphoma
     Dosage: FIFTH LINE WITH RITUXIMAB AND BENDAMUSTINE
     Route: 065
     Dates: start: 20220401, end: 20220401
  8. BENDAMUSTINE [Suspect]
     Active Substance: BENDAMUSTINE
     Indication: Follicular lymphoma
     Dosage: FIRST LINE WITH POLATUZUMAB AND RITUXIMAB
     Route: 065
     Dates: start: 20180101, end: 20180601
  9. BENDAMUSTINE [Suspect]
     Active Substance: BENDAMUSTINE
     Indication: Diffuse large B-cell lymphoma
     Dosage: FIFTH LINE WITH RITUXIMAB AND POLATUZUMAB
     Route: 065
     Dates: start: 20220401, end: 20220401
  10. CYCLOPHOSPHAMIDE\DOXORUBICIN\PREDNISONE\VINCRISTINE [Suspect]
     Active Substance: CYCLOPHOSPHAMIDE\DOXORUBICIN\PREDNISONE\VINCRISTINE
     Indication: Follicular lymphoma
     Dosage: THIRD LINE WITCH RITUXIMAB
     Route: 065
     Dates: start: 20211001, end: 20211101
  11. CYCLOPHOSPHAMIDE\DOXORUBICIN\PREDNISONE\VINCRISTINE [Suspect]
     Active Substance: CYCLOPHOSPHAMIDE\DOXORUBICIN\PREDNISONE\VINCRISTINE
     Indication: Diffuse large B-cell lymphoma

REACTIONS (1)
  - Disease progression [Not Recovered/Not Resolved]
